FAERS Safety Report 24311685 (Version 2)
Quarter: 2024Q3

REPORT INFORMATION
  Report Type: Report from Study
  Country: BR (occurrence: BR)
  Receive Date: 20240912
  Receipt Date: 20240916
  Transmission Date: 20241016
  Serious: Yes (Other)
  Sender: MYLAN
  Company Number: BR-MYLANLABS-2024M1082456

PATIENT
  Sex: Female
  Weight: 68.7 kg

DRUGS (2)
  1. XALATAN [Suspect]
     Active Substance: LATANOPROST
     Indication: Glaucoma
     Dosage: 1 GTT DROPS, BID (1 DROP IN EACH EYE, TWICE A DAY, IN THE MORNING AND AT NIGHT)
     Route: 047
  2. XALATAN [Suspect]
     Active Substance: LATANOPROST
     Dosage: 1 GTT DROPS, BID (1 DROP IN EACH EYE, TWICE A DAY, IN THE MORNING AND AT NIGHT)
     Route: 047

REACTIONS (4)
  - Cataract [Not Recovered/Not Resolved]
  - Malaise [Unknown]
  - Intraocular pressure increased [Recovered/Resolved]
  - Off label use [Not Recovered/Not Resolved]
